FAERS Safety Report 11062547 (Version 1)
Quarter: 2015Q2

REPORT INFORMATION
  Report Type: Spontaneous
  Country: TW (occurrence: None)
  Receive Date: 20150422
  Receipt Date: 20150422
  Transmission Date: 20150821
  Serious: Yes (Hospitalization)
  Sender: FDA-Public Use
  Company Number: ABR_02159_2015

PATIENT
  Age: 31 Year
  Sex: Male

DRUGS (1)
  1. AMPHETAMINE (AMPHETAMINE) [Suspect]
     Active Substance: AMPHETAMINE
     Indication: PRODUCT USED FOR UNKNOWN INDICATION
     Dosage: RESPIRATORY (INHALATION)

REACTIONS (7)
  - Traumatic lung injury [None]
  - Delirium [None]
  - Drug abuse [None]
  - Oxygen saturation decreased [None]
  - Intentional product use issue [None]
  - Agitation [None]
  - Eosinophilic pneumonia [None]
